FAERS Safety Report 8519957-2 (Version None)
Quarter: 2012Q3

REPORT INFORMATION
  Report Type: 
  Country: None (occurrence: None)
  Receive Date: 20120719
  Receipt Date: 20120714
  Transmission Date: 20120928
  Serious: Yes (Death)
  Sender: FDA-Public Use
  Company Number: US-SHIRE-ALL1-2012-03429

PATIENT

DRUGS (1)
  1. PENTASA [Suspect]
     Indication: CROHN'S DISEASE
     Dosage: 500 MG, 3X/DAY:TID
     Route: 048

REACTIONS (2)
  - DEATH [None]
  - OFF LABEL USE [None]
